FAERS Safety Report 8394705 (Version 2)
Quarter: 2012Q4

REPORT INFORMATION
  Report Type: Report from Study
  Country: DE (occurrence: DE)
  Receive Date: 20120207
  Receipt Date: 20120915
  Transmission Date: 20130627
  Serious: Yes (Hospitalization, Other)
  Sender: FDA-Public Use
  Company Number: DE-ABBOTT-12P-062-0901197-00

PATIENT
  Age: 46 Year
  Sex: Female

DRUGS (4)
  1. HUMIRA [Suspect]
     Route: 058
     Dates: start: 201007, end: 201010
  2. METHOTREXATE [Suspect]
     Indication: RHEUMATOID ARTHRITIS
     Dosage: Per week
     Dates: start: 200810
  3. ETANERCEPT [Concomitant]
     Indication: RHEUMATOID ARTHRITIS
     Dates: start: 201001, end: 201007
  4. CORTISONE [Concomitant]

REACTIONS (3)
  - Joint effusion [Recovered/Resolved]
  - Rheumatoid arthritis [Unknown]
  - Abscess limb [Recovered/Resolved]
